FAERS Safety Report 6722893-5 (Version None)
Quarter: 2010Q2

REPORT INFORMATION
  Report Type: 
  Country: None (occurrence: None)
  Receive Date: 20100511
  Receipt Date: 20100428
  Transmission Date: 20101027
  Serious: Yes (Death, Hospitalization)
  Sender: FDA-Public Use
  Company Number: 230217J09BRA

PATIENT
  Age: 36 Year
  Sex: Female

DRUGS (5)
  1. REBIF [Suspect]
     Indication: RELAPSING-REMITTING MULTIPLE SCLEROSIS
     Dosage: 44 MCG, 3 IN 1 WK, SUBCUTANEOUS
     Route: 058
     Dates: start: 20090201
  2. AZATHIOPRINE [Concomitant]
  3. CLONAZEPAM [Concomitant]
  4. BACLOFEN [Concomitant]
  5. OXYBUTYNIN CHLORIDE [Concomitant]

REACTIONS (7)
  - BALANCE DISORDER [None]
  - DYSPNOEA [None]
  - ESCHAR [None]
  - INFECTION [None]
  - MULTIPLE SCLEROSIS RELAPSE [None]
  - RESPIRATORY DISORDER [None]
  - SEPSIS [None]
